FAERS Safety Report 5013921-6 (Version None)
Quarter: 2006Q2

REPORT INFORMATION
  Report Type: 
  Country: None (occurrence: None)
  Receive Date: 20060526
  Receipt Date: 20060526
  Transmission Date: 20061013
  Serious: Yes (Hospitalization)
  Sender: FDA-Public Use
  Company Number: None

PATIENT
  Age: 63 Year
  Sex: Male
  Weight: 74.3899 kg

DRUGS (10)
  1. VANCOMYCIN [Suspect]
     Dosage: 1 GM   Q 12 H   IV
     Route: 042
     Dates: start: 20060416, end: 20060504
  2. VANCOMYCIN [Suspect]
     Dosage: 1.5 GM   Q48 H    IV
     Route: 042
     Dates: start: 20060510, end: 20060516
  3. ALBUTEROL SULFATE AUTOHALER [Concomitant]
  4. ALOH/MGOH/SIMTH XTRA STRENGTH [Concomitant]
  5. CYCLOBENZAPRINE HCL [Concomitant]
  6. IPRATROPIUM BROMIDE [Concomitant]
  7. ISOSORBIDE DINITRATE [Concomitant]
  8. LANSOPRAZOLE [Concomitant]
  9. METOPROLOL [Concomitant]
  10. NITROGLYCERIN [Concomitant]

REACTIONS (2)
  - NEPHRITIS INTERSTITIAL [None]
  - RENAL FAILURE ACUTE [None]
